FAERS Safety Report 4736151-1 (Version None)
Quarter: 2005Q3

REPORT INFORMATION
  Report Type: 
  Country: None (occurrence: None)
  Receive Date: 20050728
  Receipt Date: 20050422
  Transmission Date: 20060218
  Serious: No
  Sender: FDA-Public Use
  Company Number: 200417473US

PATIENT
  Age: 41 Year
  Sex: Male
  Weight: 75.9 kg

DRUGS (2)
  1. KETEK [Suspect]
     Indication: ACUTE SINUSITIS
     Dosage: 800 MG
     Dates: start: 20040924, end: 20040927
  2. KETEK [Suspect]
     Indication: ACUTE SINUSITIS
     Dates: start: 20041201

REACTIONS (2)
  - VISION BLURRED [None]
  - VISUAL DISTURBANCE [None]
